FAERS Safety Report 9139478 (Version 1)
Quarter: 2013Q1

REPORT INFORMATION
  Report Type: Spontaneous
  Country: US (occurrence: US)
  Receive Date: 20130305
  Receipt Date: 20130305
  Transmission Date: 20140127
  Serious: Yes (Death, Other)
  Sender: FDA-Public Use
  Company Number: US-SANOFI-AVENTIS-2013SA021239

PATIENT
  Age: 15 Year
  Sex: Female

DRUGS (4)
  1. KAYEXALATE [Suspect]
     Indication: HYPERKALAEMIA
     Dosage: ONE ENEMA (120 ML ) OF PREMIXED PRODUCT OF SODIUM POLYSTYRENE SULFONATE WITH SORBITOL.
  2. KAYEXALATE [Suspect]
     Indication: HYPERKALAEMIA
     Dosage: ONE ENEMA (120 ML ) OF PREMIXED PRODUCT OF SODIUM POLYSTYRENE SULFONATE WITH SORBITOL.
  3. SORBITOL [Suspect]
     Indication: HYPERKALAEMIA
     Dosage: ONE ENEMA (120 ML ) OF PREMIXED PRODUCT OF SODIUM POLYSTYRENE SULFONATE WITH SORBITOL.
  4. SORBITOL [Suspect]
     Indication: HYPERKALAEMIA
     Dosage: ONE ENEMA (120 ML ) OF PREMIXED PRODUCT OF SODIUM POLYSTYRENE SULFONATE WITH SORBITOL.

REACTIONS (2)
  - Sepsis [Fatal]
  - Gastrointestinal disorder [Unknown]
